FAERS Safety Report 5524967-3 (Version None)
Quarter: 2007Q4

REPORT INFORMATION
  Report Type: 
  Country: None (occurrence: None)
  Receive Date: 20071126
  Receipt Date: 20071119
  Transmission Date: 20080405
  Serious: Yes (Hospitalization)
  Sender: FDA-Public Use
  Company Number: IE-ELI_LILLY_AND_COMPANY-IE200708002227

PATIENT
  Age: 33 Year
  Sex: Female

DRUGS (4)
  1. ZYPREXA [Suspect]
     Indication: MAJOR DEPRESSION
     Dosage: 7.5 MG, UNKNOWN
     Route: 065
  2. ZYPREXA [Suspect]
     Dosage: 15 G, EACH EVENING
  3. VENLAFAXINE HCL [Concomitant]
     Dosage: UNK, 2/D
     Route: 065
  4. QUETIAPINE FUMARATE [Concomitant]

REACTIONS (4)
  - AMENORRHOEA [None]
  - BLOOD PROLACTIN INCREASED [None]
  - GALACTORRHOEA [None]
  - MAJOR DEPRESSION [None]
